FAERS Safety Report 9555092 (Version 1)
Quarter: 2013Q3

REPORT INFORMATION
  Report Type: Spontaneous
  Country: US (occurrence: None)
  Receive Date: 20130724
  Receipt Date: 20130724
  Transmission Date: 20140515
  Serious: Yes (Other)
  Sender: FDA-Public Use
  Company Number: PHEH2013US005704

PATIENT
  Age: 51 Year
  Sex: Female

DRUGS (2)
  1. GILENYA [Suspect]
     Indication: MULTIPLE SCLEROSIS
     Route: 048
     Dates: start: 20120820
  2. MODAFINIL (MODAFINIL) [Concomitant]

REACTIONS (5)
  - Feeling abnormal [None]
  - Fatigue [None]
  - Nausea [None]
  - Dyspnoea [None]
  - Dizziness [None]
